FAERS Safety Report 4466205-9 (Version None)
Quarter: 2004Q3

REPORT INFORMATION
  Report Type: 
  Country: None (occurrence: None)
  Receive Date: 20040930
  Receipt Date: 20040916
  Transmission Date: 20050211
  Serious: Yes (Other)
  Sender: FDA-Public Use
  Company Number: DE-2004-032047

PATIENT
  Sex: Female

DRUGS (1)
  1. BETAFERON [Suspect]
     Indication: MULTIPLE SCLEROSIS
     Dosage: SUBCUTANEOUS
     Route: 058

REACTIONS (5)
  - CONTRAST MEDIA REACTION [None]
  - EYE PAIN [None]
  - EYE SWELLING [None]
  - VISION BLURRED [None]
  - VISUAL ACUITY REDUCED [None]
